FAERS Safety Report 6955479-8 (Version None)
Quarter: 2010Q3

REPORT INFORMATION
  Report Type: 
  Country: None (occurrence: None)
  Receive Date: 20100830
  Receipt Date: 20100818
  Transmission Date: 20110219
  Serious: Yes (Death, Other)
  Sender: FDA-Public Use
  Company Number: GB-PFIZER INC-2010104447

PATIENT
  Age: 33 Year
  Sex: Male
  Weight: 100 kg

DRUGS (2)
  1. CHAMPIX [Suspect]
     Indication: NICOTINE DEPENDENCE
     Dosage: UNK
     Route: 048
     Dates: start: 20100610, end: 20100729
  2. AMOXICILLIN [Concomitant]
     Dosage: UNK

REACTIONS (2)
  - COMPLETED SUICIDE [None]
  - HOMICIDE [None]
